FAERS Safety Report 14606694 (Version 1)
Quarter: 2018Q1

REPORT INFORMATION
  Report Type: Spontaneous
  Country: GR (occurrence: GR)
  Receive Date: 20180307
  Receipt Date: 20180307
  Transmission Date: 20180509
  Serious: Yes (Death, Other)
  Sender: FDA-Public Use
  Company Number: GR-TEVA-2018-GR-865191

PATIENT

DRUGS (4)
  1. BLEOMYCIN [Suspect]
     Active Substance: BLEOMYCIN SULFATE
     Indication: MALIGNANT MELANOMA
     Dosage: ON DAY 1
     Route: 042
  2. CARBOPLATIN. [Suspect]
     Active Substance: CARBOPLATIN
     Indication: MALIGNANT MELANOMA
     Route: 042
  3. VINBLASTINE [Suspect]
     Active Substance: VINBLASTINE
     Indication: MALIGNANT MELANOMA
     Route: 042
  4. ROFERON-A [Suspect]
     Active Substance: INTERFERON ALFA-2A
     Indication: MALIGNANT MELANOMA
     Dosage: 5 X 10^6 UNITS, ON DAY 2 AND THEN ON MONDAY, WEDNESDAY, AND FRIDAY OF EACH WEEK
     Route: 058

REACTIONS (1)
  - Pneumonitis [Fatal]
